FAERS Safety Report 6122373-4 (Version None)
Quarter: 2009Q1

REPORT INFORMATION
  Report Type: 
  Country: None (occurrence: None)
  Receive Date: 20090318
  Receipt Date: 20090204
  Transmission Date: 20090719
  Serious: No
  Sender: FDA-Public Use
  Company Number: US-ASTRAZENECA-2009UW03490

PATIENT
  Age: 74 Year
  Sex: Female

DRUGS (17)
  1. SYMBICORT [Suspect]
     Indication: ASTHMA
     Dosage: 160/4.5 UG
     Route: 055
     Dates: start: 20090101
  2. ACTOS [Concomitant]
  3. ALLEGRA D 24 HOUR [Concomitant]
  4. ACYCLOVIR [Concomitant]
  5. GLIPIZIDE [Concomitant]
  6. SYNTHROID [Concomitant]
  7. TRIAMTERENE AND HYDROCHLOROTHIAZIDE [Concomitant]
  8. SINGULAIR [Concomitant]
  9. POTASSIUM CHLORIDE [Concomitant]
  10. OMEPRAZOLE [Concomitant]
  11. VYTORIN [Concomitant]
  12. SERTRALINE [Concomitant]
  13. GABAPENTIN [Concomitant]
  14. MUCINEX [Concomitant]
  15. ASCORBIC ACID [Concomitant]
  16. EYE CAPS [Concomitant]
  17. CALTRATE [Concomitant]

REACTIONS (2)
  - DIZZINESS [None]
  - VISION BLURRED [None]
